FAERS Safety Report 7267757-6 (Version None)
Quarter: 2011Q1

REPORT INFORMATION
  Report Type: 
  Country: None (occurrence: None)
  Receive Date: 20110201
  Receipt Date: 20110124
  Transmission Date: 20110831
  Serious: Yes (Hospitalization)
  Sender: FDA-Public Use
  Company Number: A0790822A

PATIENT
  Age: 63 Year
  Sex: Female

DRUGS (6)
  1. PROZAC [Concomitant]
  2. DARVOCET-N 100 [Concomitant]
  3. LIPITOR [Concomitant]
  4. SYNTHROID [Concomitant]
  5. DEPAKOTE [Concomitant]
  6. AVANDIA [Suspect]
     Dosage: 4MG PER DAY
     Route: 048
     Dates: start: 20000201, end: 20070501

REACTIONS (3)
  - MYOCARDIAL ISCHAEMIA [None]
  - CARDIAC FAILURE CONGESTIVE [None]
  - MYOCARDIAL INFARCTION [None]
